FAERS Safety Report 9437454 (Version 2)
Quarter: 2013Q3

REPORT INFORMATION
  Report Type: Spontaneous
  Country: US (occurrence: US)
  Receive Date: 20130802
  Receipt Date: 20130813
  Transmission Date: 20140515
  Serious: Yes (Other)
  Sender: FDA-Public Use
  Company Number: US-SANOFI-AVENTIS-2013SA076769

PATIENT
  Age: 83 Year
  Sex: Female

DRUGS (2)
  1. AVAPRO [Suspect]
     Indication: BLOOD PRESSURE
     Dosage: STARTED 4 YEAR AGO
     Route: 048
  2. AVAPRO [Suspect]
     Indication: BLOOD PRESSURE
     Route: 048

REACTIONS (8)
  - Renal cyst [Not Recovered/Not Resolved]
  - Bladder cyst [Not Recovered/Not Resolved]
  - Adverse event [Not Recovered/Not Resolved]
  - Nephrolithiasis [Unknown]
  - Carbon dioxide increased [Unknown]
  - Ureteric stenosis [Unknown]
  - Blood urea increased [Unknown]
  - Tooth disorder [Unknown]
